FAERS Safety Report 23757368 (Version 1)
Quarter: 2024Q2

REPORT INFORMATION
  Report Type: Spontaneous
  Country: US (occurrence: US)
  Receive Date: 20240418
  Receipt Date: 20240418
  Transmission Date: 20240716
  Serious: No
  Sender: FDA-Public Use
  Company Number: US-MYLANLABS-2024M1032468

PATIENT
  Sex: Female
  Weight: 63.5 kg

DRUGS (4)
  1. CELEBREX [Suspect]
     Active Substance: CELECOXIB
     Indication: Sickle cell disease
     Dosage: UNK
     Route: 065
  2. CELEBREX [Suspect]
     Active Substance: CELECOXIB
     Indication: Haemoglobin decreased
  3. OXBRYTA [Suspect]
     Active Substance: VOXELOTOR
     Indication: Sickle cell disease
     Dosage: UNK
     Route: 065
  4. OXBRYTA [Suspect]
     Active Substance: VOXELOTOR
     Indication: Haemoglobin decreased

REACTIONS (2)
  - Abdominal discomfort [Recovered/Resolved]
  - Off label use [Unknown]
